FAERS Safety Report 5071657-X (Version None)
Quarter: 2006Q3

REPORT INFORMATION
  Report Type: 
  Country: None (occurrence: None)
  Receive Date: 20060801
  Receipt Date: 20060724
  Transmission Date: 20061208
  Serious: Yes (Other)
  Sender: FDA-Public Use
  Company Number: 2006084092

PATIENT
  Age: 22 Year
  Sex: Male

DRUGS (2)
  1. ATARAX [Suspect]
     Indication: ANXIETY
     Dosage: 25 MG (1 IN 1 D), INTRAVENOUS
     Route: 042
     Dates: start: 20060614
  2. . [Concomitant]

REACTIONS (1)
  - PHLEBITIS [None]
